FAERS Safety Report 14572301 (Version 3)
Quarter: 2018Q2

REPORT INFORMATION
  Report Type: Spontaneous
  Country: US (occurrence: US)
  Receive Date: 20180226
  Receipt Date: 20180608
  Transmission Date: 20180711
  Serious: Yes (Other)
  Sender: FDA-Public Use
  Company Number: US-BAYER-2018-033084

PATIENT

DRUGS (21)
  1. CIPRO [Suspect]
     Active Substance: CIPROFLOXACIN HYDROCHLORIDE
     Indication: PROSTATITIS
     Dosage: 500 MG, UNK
     Dates: start: 19980622, end: 19980722
  2. CIPRO [Suspect]
     Active Substance: CIPROFLOXACIN HYDROCHLORIDE
     Indication: PROSTATITIS
     Dosage: 500 MG, UNK
     Dates: start: 20101019, end: 20101118
  3. ALLOPURINOL. [Concomitant]
     Active Substance: ALLOPURINOL
     Indication: GOUT
     Dosage: UNK
  4. CIPRO [Suspect]
     Active Substance: CIPROFLOXACIN HYDROCHLORIDE
     Indication: PROSTATITIS
     Dosage: 500 MG, UNK
     Dates: start: 19990324, end: 19990408
  5. CIPRO [Suspect]
     Active Substance: CIPROFLOXACIN HYDROCHLORIDE
     Indication: PROSTATITIS
     Dosage: 500 MG, UNK
     Dates: start: 20000522, end: 20000621
  6. CIPRO [Suspect]
     Active Substance: CIPROFLOXACIN HYDROCHLORIDE
     Indication: PROSTATITIS
     Dosage: 500 MG, UNK
     Dates: start: 20080903, end: 20081003
  7. CIPRO [Suspect]
     Active Substance: CIPROFLOXACIN HYDROCHLORIDE
     Indication: PROSTATITIS
     Dosage: 500 MG, UNK
     Dates: start: 20110623, end: 20110723
  8. CIPRO [Suspect]
     Active Substance: CIPROFLOXACIN HYDROCHLORIDE
     Indication: PROSTATITIS
     Dosage: 500 MG, UNK
     Dates: start: 20140501, end: 20140531
  9. CIPRO [Suspect]
     Active Substance: CIPROFLOXACIN HYDROCHLORIDE
     Indication: PROSTATITIS
     Dosage: 500 MG, UNK
     Dates: start: 19980203, end: 19980305
  10. CIPRO [Suspect]
     Active Substance: CIPROFLOXACIN HYDROCHLORIDE
     Indication: PROSTATITIS
     Dosage: 500 MG, UNK
     Dates: start: 20111207, end: 20120106
  11. CIPRO [Suspect]
     Active Substance: CIPROFLOXACIN HYDROCHLORIDE
     Indication: PROSTATITIS
     Dosage: 500 MG, UNK
     Dates: start: 19980410, end: 19980510
  12. CIPRO [Suspect]
     Active Substance: CIPROFLOXACIN HYDROCHLORIDE
     Indication: PROSTATITIS
     Dosage: 500 MG, UNK
     Dates: start: 20020314, end: 20020328
  13. CIPRO [Suspect]
     Active Substance: CIPROFLOXACIN HYDROCHLORIDE
     Indication: PROSTATITIS
     Dosage: 500 MG, UNK
     Dates: start: 20061227, end: 20070126
  14. CIPRO [Suspect]
     Active Substance: CIPROFLOXACIN HYDROCHLORIDE
     Indication: PROSTATITIS
     Dosage: 500 MG, UNK
     Dates: start: 20120307, end: 20120406
  15. CIPRO [Suspect]
     Active Substance: CIPROFLOXACIN HYDROCHLORIDE
     Indication: PROSTATITIS
     Dosage: 500 MG, UNK
     Dates: start: 19980211, end: 19980304
  16. CIPRO [Suspect]
     Active Substance: CIPROFLOXACIN HYDROCHLORIDE
     Indication: PROSTATITIS
     Dosage: 400 MG, UNK
     Dates: start: 20180205, end: 20180406
  17. CIPRO [Suspect]
     Active Substance: CIPROFLOXACIN HYDROCHLORIDE
     Indication: PROSTATITIS
     Dosage: 500 MG, UNK
     Dates: start: 20000425, end: 20000509
  18. CIPRO [Suspect]
     Active Substance: CIPROFLOXACIN HYDROCHLORIDE
     Indication: PROSTATITIS
     Dosage: 500 MG, UNK
     Dates: start: 20120814, end: 20120913
  19. CIPRO [Suspect]
     Active Substance: CIPROFLOXACIN HYDROCHLORIDE
     Indication: PROSTATITIS
     Dosage: 500 MG, UNK
     Dates: start: 20110714, end: 20110813
  20. CIPRO [Suspect]
     Active Substance: CIPROFLOXACIN HYDROCHLORIDE
     Indication: PROSTATITIS
     Dosage: 500 MG, UNK
     Dates: start: 20040131, end: 20040301
  21. CIPRO [Suspect]
     Active Substance: CIPROFLOXACIN HYDROCHLORIDE
     Indication: PROSTATITIS
     Dosage: 500 MG, UNK
     Dates: start: 20110611, end: 20110711

REACTIONS (10)
  - Chronic kidney disease [None]
  - Shoulder arthroplasty [None]
  - Arthritis [None]
  - Hypertension [None]
  - Knee arthroplasty [None]
  - Neuropathy peripheral [None]
  - Wrist fracture [None]
  - Blood cholesterol increased [None]
  - Gout [None]
  - Gastrointestinal disorder [None]

NARRATIVE: CASE EVENT DATE: 2000
